FAERS Safety Report 8354667-6 (Version None)
Quarter: 2012Q2

REPORT INFORMATION
  Report Type: 
  Country: None (occurrence: None)
  Receive Date: 20120511
  Receipt Date: 20120202
  Transmission Date: 20120825
  Serious: Yes (Life-Threatening, Hospitalization)
  Sender: FDA-Public Use
  Company Number: PHHO2011US019223

PATIENT
  Sex: Male
  Weight: 115.31 kg

DRUGS (8)
  1. SIMVASTATIN [Concomitant]
     Indication: DYSLIPIDAEMIA
     Dosage: 40 MG, QD
     Dates: start: 20100905
  2. EFFIENT [Concomitant]
     Indication: CARDIOVASCULAR EVENT PROPHYLAXIS
     Dosage: 10 MG, QD
     Dates: start: 20100906
  3. LISINOPRIL [Concomitant]
     Indication: HYPERTENSION
     Dosage: 2.5 MG, QD
     Dates: start: 20100905
  4. BYSTOLIC [Concomitant]
     Indication: HYPERTENSION
     Dosage: 2.5 MG, QD
     Dates: start: 20100927
  5. NIASPAN [Concomitant]
     Indication: DYSLIPIDAEMIA
     Dosage: 1000 MG, QD
     Dates: start: 20110927
  6. ILARIS [Suspect]
     Indication: CARDIOVASCULAR EVENT PROPHYLAXIS
     Dosage: 150 MG, UNK
     Dates: start: 20111025
  7. ZOCOR [Concomitant]
     Dosage: 40 MG, QHS
  8. ASPIRIN [Concomitant]
     Indication: CARDIOVASCULAR EVENT PROPHYLAXIS
     Dosage: 81 MG, QD
     Dates: start: 20101115

REACTIONS (3)
  - SEPSIS [None]
  - CELLULITIS [None]
  - BETA HAEMOLYTIC STREPTOCOCCAL INFECTION [None]
